FAERS Safety Report 23048699 (Version 3)
Quarter: 2024Q1

REPORT INFORMATION
  Report Type: Other
  Country: DE (occurrence: None)
  Receive Date: 20231010
  Receipt Date: 20240321
  Transmission Date: 20240409
  Serious: No
  Sender: FDA-Public Use
  Company Number: DE-ROCHE-3435705

PATIENT
  Age: 22 Year
  Sex: Female

DRUGS (2)
  1. OCREVUS [Suspect]
     Active Substance: OCRELIZUMAB
     Indication: Relapsing multiple sclerosis
     Route: 042
     Dates: start: 20201126, end: 20201209
  2. OCREVUS [Suspect]
     Active Substance: OCRELIZUMAB
     Route: 042
     Dates: start: 20210812

REACTIONS (2)
  - Herpes zoster [Recovered/Resolved]
  - CD8 lymphocytes increased [Not Recovered/Not Resolved]

NARRATIVE: CASE EVENT DATE: 20230601
